FAERS Safety Report 15837952 (Version 1)
Quarter: 2019Q1

REPORT INFORMATION
  Report Type: Spontaneous
  Country: US (occurrence: US)
  Receive Date: 20190117
  Receipt Date: 20190117
  Transmission Date: 20190417
  Serious: Yes (Other)
  Sender: FDA-Public Use
  Company Number: None

PATIENT
  Age: 84 Year
  Sex: Male
  Weight: 76.5 kg

DRUGS (1)
  1. MYRBETRIQ [Suspect]
     Active Substance: MIRABEGRON
     Indication: NOCTURIA
     Dosage: ?          QUANTITY:1 TABLET(S);?
     Route: 048
     Dates: start: 20190109, end: 20190114

REACTIONS (6)
  - Conjunctivitis [None]
  - Lacrimation increased [None]
  - Rhinorrhoea [None]
  - Cough [None]
  - Conjunctival hyperaemia [None]
  - Epistaxis [None]

NARRATIVE: CASE EVENT DATE: 20190109
